FAERS Safety Report 4681229-4 (Version None)
Quarter: 2005Q2

REPORT INFORMATION
  Report Type: 
  Country: None (occurrence: None)
  Receive Date: 20050603
  Receipt Date: 20050524
  Transmission Date: 20051028
  Serious: Yes (Death)
  Sender: FDA-Public Use
  Company Number: US-JNJFOC-20050403336

PATIENT
  Age: 40 Year
  Sex: Female

DRUGS (4)
  1. DURAGESIC-100 [Suspect]
  2. DURAGESIC-100 [Suspect]
  3. NORTRIPTYLINE [Suspect]
  4. OXYCODONE HCL [Suspect]

REACTIONS (3)
  - DEVICE FAILURE [None]
  - MULTIPLE DRUG OVERDOSE [None]
  - PHARMACEUTICAL PRODUCT COMPLAINT [None]
